FAERS Safety Report 17628814 (Version 5)
Quarter: 2020Q3

REPORT INFORMATION
  Report Type: Spontaneous
  Country: DE (occurrence: DE)
  Receive Date: 20200406
  Receipt Date: 20200806
  Transmission Date: 20201102
  Serious: Yes (Other)
  Sender: FDA-Public Use
  Company Number: DE-AUROBINDO-AUR-APL-2020-016420

PATIENT
  Age: 49 Year
  Sex: Female
  Weight: 123 kg

DRUGS (22)
  1. UPTRAVI [Suspect]
     Active Substance: SELEXIPAG
     Dosage: 600 MICROGRAM, ONCE A DAY
     Route: 048
     Dates: start: 20190626, end: 20190715
  2. DEKRISTOL [Concomitant]
     Active Substance: CHOLECALCIFEROL
     Indication: VITAMIN D
     Dosage: UNK
     Route: 048
  3. SILDENAFIL. [Suspect]
     Active Substance: SILDENAFIL
     Indication: PULMONARY ARTERIAL HYPERTENSION
     Dosage: 60 MILLIGRAM, ONCE A DAY
     Route: 048
     Dates: start: 20180606
  4. ALDACTONE [Concomitant]
     Active Substance: SPIRONOLACTONE
     Indication: PRODUCT USED FOR UNKNOWN INDICATION
     Dosage: UNK
     Route: 048
     Dates: start: 20200225
  5. PANTOPRAZOLE [Concomitant]
     Active Substance: PANTOPRAZOLE
     Indication: PRODUCT USED FOR UNKNOWN INDICATION
     Dosage: UNK
     Route: 048
  6. XIPAMID [Concomitant]
     Active Substance: XIPAMIDE
     Indication: DIURETIC THERAPY
     Dosage: UNK
     Route: 048
     Dates: start: 20190926
  7. UPTRAVI [Suspect]
     Active Substance: SELEXIPAG
     Indication: PULMONARY ARTERIAL HYPERTENSION
     Dosage: 400 MICROGRAM, ONCE A DAY
     Route: 048
     Dates: start: 20190618, end: 20190625
  8. UPTRAVI [Suspect]
     Active Substance: SELEXIPAG
     Dosage: 800 MICROGRAM, ONCE A DAY
     Route: 048
     Dates: start: 20190716, end: 20190723
  9. UPTRAVI [Suspect]
     Active Substance: SELEXIPAG
     Dosage: 1200 MICROGRAM, ONCE A DAY
     Route: 048
     Dates: start: 20190731, end: 20200512
  10. COTRIM FORTE [Concomitant]
     Active Substance: SULFAMETHOXAZOLE\TRIMETHOPRIM
     Indication: URINARY TRACT INFECTION
     Dosage: UNK
     Route: 048
     Dates: start: 2019
  11. RAMIPRIL. [Concomitant]
     Active Substance: RAMIPRIL
     Indication: HYPERTENSION
     Dosage: UNK
     Route: 048
  12. OPSUMIT [Suspect]
     Active Substance: MACITENTAN
     Dosage: 10 MILLIGRAM, ONCE A DAY
     Route: 048
     Dates: start: 20190731
  13. UPTRAVI [Suspect]
     Active Substance: SELEXIPAG
     Dosage: 1600 MICROGRAM, ONCE A DAY
     Route: 048
     Dates: start: 20200513
  14. BISOPROLOL [Concomitant]
     Active Substance: BISOPROLOL
     Indication: HYPERTENSION
     Dosage: UNK
     Route: 048
     Dates: start: 202001
  15. UPTRAVI [Suspect]
     Active Substance: SELEXIPAG
     Dosage: 1000 MICROGRAM, ONCE A DAY
     Route: 048
     Dates: start: 20190724, end: 20190730
  16. ELIQUIS [Concomitant]
     Active Substance: APIXABAN
     Indication: ANTICOAGULANT THERAPY
     Dosage: UNK
     Route: 048
     Dates: start: 201902
  17. MYCOPHENOLAT MOFETIL ACCORD [Concomitant]
     Active Substance: MYCOPHENOLATE MOFETIL
     Indication: IMMUNOSUPPRESSANT DRUG THERAPY
     Dosage: UNK
     Route: 048
  18. NOVALGIN [Concomitant]
     Indication: ANALGESIC THERAPY
     Dosage: UNK
     Route: 048
  19. OXYGEN. [Concomitant]
     Active Substance: OXYGEN
     Indication: DYSPNOEA
     Dosage: UNK
     Route: 055
     Dates: start: 201710
  20. COTRIM FORTE [Concomitant]
     Active Substance: SULFAMETHOXAZOLE\TRIMETHOPRIM
     Indication: BRONCHITIS
     Dosage: UNK
     Route: 048
     Dates: start: 201907
  21. TORASEMIDE [Concomitant]
     Active Substance: TORSEMIDE
     Indication: DIURETIC THERAPY
     Dosage: UNK
     Route: 048
  22. OPSUMIT [Suspect]
     Active Substance: MACITENTAN
     Indication: PULMONARY ARTERIAL HYPERTENSION
     Dosage: 10 MILLIGRAM, ONCE A DAY
     Route: 048
     Dates: start: 20180606

REACTIONS (8)
  - Blood uric acid increased [Recovered/Resolved]
  - Glomerular filtration rate decreased [Recovered/Resolved]
  - Bronchitis [Recovered/Resolved]
  - Blood creatinine increased [Recovered/Resolved]
  - Pregnancy [Unknown]
  - Renal disorder [Unknown]
  - Blood urea increased [Recovered/Resolved]
  - Renal impairment [Recovered/Resolved]

NARRATIVE: CASE EVENT DATE: 20190827
